FAERS Safety Report 4807242-1 (Version None)
Quarter: 2005Q4

REPORT INFORMATION
  Report Type: 
  Country: None (occurrence: None)
  Receive Date: 20051020
  Receipt Date: 20051020
  Transmission Date: 20060501
  Serious: Yes (Death)
  Sender: FDA-Public Use
  Company Number: None

PATIENT
  Age: 48 Year
  Sex: Male
  Weight: 104.3273 kg

DRUGS (8)
  1. PROZAC [Suspect]
     Indication: DEPRESSION
  2. REMERON [Suspect]
     Indication: DEPRESSION
  3. REMERON [Concomitant]
  4. ATIVAN [Concomitant]
  5. RESTORIL [Concomitant]
  6. HYDROCODONE [Concomitant]
  7. DILANTIN [Concomitant]
  8. PREDNISONE [Concomitant]

REACTIONS (1)
  - COMPLETED SUICIDE [None]
